FAERS Safety Report 4822399-4 (Version None)
Quarter: 2005Q4

REPORT INFORMATION
  Report Type: 
  Country: None (occurrence: None)
  Receive Date: 20051104
  Receipt Date: 20051104
  Transmission Date: 20060501
  Serious: Yes (Life-Threatening, Hospitalization)
  Sender: FDA-Public Use
  Company Number: None

PATIENT
  Age: 31 Year
  Sex: Male
  Weight: 70.7611 kg

DRUGS (1)
  1. SOLU-MEDROL [Suspect]
     Indication: MULTIPLE SCLEROSIS
     Dosage: 1 GRAM  X1  IV DRIP   1 DOSE
     Route: 042

REACTIONS (9)
  - EYE MOVEMENT DISORDER [None]
  - FAECAL INCONTINENCE [None]
  - FALL [None]
  - HEAD INJURY [None]
  - HYPOTENSION [None]
  - INCOHERENT [None]
  - RASH ERYTHEMATOUS [None]
  - RESPIRATORY ARREST [None]
  - URINARY INCONTINENCE [None]
